FAERS Safety Report 8850182 (Version 1)
Quarter: 2012Q4

REPORT INFORMATION
  Report Type: 
  Country: ES (occurrence: ES)
  Receive Date: 20121019
  Receipt Date: 20121019
  Transmission Date: 20130627
  Serious: Yes (Other)
  Sender: FDA-Public Use
  Company Number: ES-GLAXOSMITHKLINE-B0838856A

PATIENT
  Age: 82 Year
  Sex: Female

DRUGS (4)
  1. TROBALT [Suspect]
     Indication: EPILEPSY
     Dosage: 300MG Per day
     Route: 048
     Dates: start: 20120508, end: 20120524
  2. VIMPAT [Concomitant]
     Dosage: 50MG Twice per day
     Dates: end: 20120508
  3. SERC [Concomitant]
     Indication: VERTIGO
  4. EPO [Concomitant]
     Indication: REFRACTORY CYTOPENIA WITH MULTILINEAGE DYSPLASIA AND RINGED SIDEROBLASTS

REACTIONS (9)
  - Urinary retention [Recovered/Resolved]
  - Encephalopathy [Recovered/Resolved]
  - Urine output decreased [Recovered/Resolved]
  - Bradyphrenia [Recovered/Resolved]
  - Oliguria [Recovered/Resolved]
  - Disorientation [Recovered/Resolved]
  - Asterixis [Recovered/Resolved]
  - Confusional state [Recovered/Resolved]
  - Somnolence [Recovered/Resolved]
